FAERS Safety Report 8896362 (Version 1)
Quarter: 2012Q4

REPORT INFORMATION
  Report Type: Spontaneous
  Country: US (occurrence: None)
  Receive Date: 20121107
  Receipt Date: 20121107
  Transmission Date: 20130627
  Serious: Yes (Disabling)
  Sender: FDA-Public Use
  Company Number: None

PATIENT
  Age: 78 Year
  Sex: Male
  Weight: 71.67 kg

DRUGS (9)
  1. OMEPRAZOLE [Suspect]
     Indication: BARRETT^S ESOPHAGUS
     Dosage: 20 mg 2 x day po
     Route: 048
     Dates: start: 20081212, end: 20121105
  2. ALODIPINE [Concomitant]
  3. ASPIRIN [Concomitant]
  4. VITAMIN D [Concomitant]
  5. FERROUS SULFATE [Concomitant]
  6. IRON [Concomitant]
  7. LEVOTHYROXINE [Concomitant]
  8. LISINOPRIL [Concomitant]
  9. PRAVASTATIN [Concomitant]

REACTIONS (2)
  - Movement disorder [None]
  - Tardive dyskinesia [None]
